FAERS Safety Report 10103052 (Version 1)
Quarter: 2014Q2

REPORT INFORMATION
  Report Type: Spontaneous
  Country: CH (occurrence: None)
  Receive Date: 20140422
  Receipt Date: 20140422
  Transmission Date: 20141212
  Serious: Yes (Other)
  Sender: FDA-Public Use
  Company Number: 20140211

PATIENT
  Age: 61 Year
  Sex: Male

DRUGS (1)
  1. FERINJECT (FERRIC CARBOXYMALTOSE-VIFOR) [Suspect]
     Indication: ANAEMIA

REACTIONS (2)
  - Upper gastrointestinal haemorrhage [None]
  - Disease recurrence [None]
